FAERS Safety Report 10776038 (Version 1)
Quarter: 2015Q1

REPORT INFORMATION
  Report Type: Spontaneous
  Country: US (occurrence: US)
  Receive Date: 20150209
  Receipt Date: 20150209
  Transmission Date: 20150721
  Serious: No
  Sender: FDA-Public Use
  Company Number: US-GLAXOSMITHKLINE-A1072524A

PATIENT

DRUGS (1)
  1. BENLYSTA [Suspect]
     Active Substance: BELIMUMAB
     Indication: SYSTEMIC LUPUS ERYTHEMATOSUS
     Dosage: 120 MG EVERY 28 DAYS.
     Route: 065
     Dates: start: 20140326

REACTIONS (11)
  - Tremor [Unknown]
  - Musculoskeletal pain [Unknown]
  - Pain [Unknown]
  - Crying [Unknown]
  - Facial pain [Unknown]
  - Insomnia [Unknown]
  - Depression [Unknown]
  - Myalgia [Unknown]
  - Pain in extremity [Recovered/Resolved]
  - Middle insomnia [Unknown]
  - Anxiety [Unknown]

NARRATIVE: CASE EVENT DATE: 20140326
